FAERS Safety Report 5395913-0 (Version None)
Quarter: 2007Q3

REPORT INFORMATION
  Report Type: 
  Country: None (occurrence: None)
  Receive Date: 20070724
  Receipt Date: 20070712
  Transmission Date: 20080115
  Serious: Yes (Life-Threatening, Hospitalization, Other)
  Sender: FDA-Public Use
  Company Number: JP-PFIZER INC-2007054359

PATIENT
  Sex: Female
  Weight: 61.5 kg

DRUGS (9)
  1. ALDACTONE [Suspect]
     Indication: CARDIAC FAILURE
     Route: 048
     Dates: start: 20070201, end: 20070627
  2. MICARDIS [Suspect]
     Indication: HYPERTENSION
     Dates: start: 20050101, end: 20070627
  3. AMARYL [Concomitant]
     Indication: DIABETES MELLITUS
     Dates: start: 20030101, end: 20070627
  4. BASEN [Concomitant]
     Indication: DIABETES MELLITUS
  5. ASPIRIN [Concomitant]
  6. LASIX [Concomitant]
     Route: 048
  7. ARTIST [Concomitant]
     Dates: start: 20030101, end: 20070627
  8. FRANDOL [Concomitant]
     Route: 048
     Dates: start: 19991001, end: 20070627
  9. MAGNESIUM OXIDE [Concomitant]
     Route: 048
     Dates: start: 19991001, end: 20070627

REACTIONS (3)
  - BRADYARRHYTHMIA [None]
  - HYPERKALAEMIA [None]
  - HYPOTENSION [None]
